FAERS Safety Report 25618556 (Version 1)
Quarter: 2025Q3

REPORT INFORMATION
  Report Type: Spontaneous
  Country: US (occurrence: None)
  Receive Date: 20250729
  Receipt Date: 20250729
  Transmission Date: 20251020
  Serious: Yes (Other)
  Sender: FDA-CTU
  Company Number: None

PATIENT
  Age: 57 Year
  Sex: Male

DRUGS (1)
  1. VENCLEXTA [Suspect]
     Active Substance: VENETOCLAX
     Dosage: FREQUENCY : DAILY;?
     Route: 048

REACTIONS (7)
  - Catheter site abscess [None]
  - Mood swings [None]
  - Poor quality sleep [None]
  - Nausea [None]
  - Vomiting [None]
  - Productive cough [None]
  - Chronic obstructive pulmonary disease [None]
